FAERS Safety Report 16630948 (Version 18)
Quarter: 2025Q2

REPORT INFORMATION
  Report Type: Report from Study
  Country: CO (occurrence: CO)
  Receive Date: 20190725
  Receipt Date: 20250415
  Transmission Date: 20250716
  Serious: Yes (Other)
  Sender: NOVARTIS
  Company Number: PHHY2018CO055420

PATIENT
  Age: 58 Year
  Sex: Female
  Weight: 67 kg

DRUGS (28)
  1. TASIGNA [Suspect]
     Active Substance: NILOTINIB
     Indication: Chronic myeloid leukaemia
     Dosage: 800 MG QD
     Route: 048
     Dates: start: 20151002
  2. TASIGNA [Suspect]
     Active Substance: NILOTINIB
     Dosage: 800 MG QD
     Route: 048
     Dates: start: 20151020
  3. TASIGNA [Suspect]
     Active Substance: NILOTINIB
     Dosage: 800 MG, QD
     Route: 048
  4. TASIGNA [Suspect]
     Active Substance: NILOTINIB
     Dosage: 800 MG, QD
     Route: 048
     Dates: start: 2016
  5. TASIGNA [Suspect]
     Active Substance: NILOTINIB
     Dosage: 800 MG, QD
     Route: 048
  6. TASIGNA [Suspect]
     Active Substance: NILOTINIB
     Route: 048
  7. TASIGNA [Suspect]
     Active Substance: NILOTINIB
     Route: 048
  8. TASIGNA [Suspect]
     Active Substance: NILOTINIB
     Route: 048
  9. TASIGNA [Suspect]
     Active Substance: NILOTINIB
     Dosage: 400 MG, BID
     Route: 048
  10. TASIGNA [Suspect]
     Active Substance: NILOTINIB
     Dosage: 400 MG (EVERY 12 HOURS EVERY OTHER DAY)
     Route: 048
  11. TASIGNA [Suspect]
     Active Substance: NILOTINIB
     Route: 048
  12. TASIGNA [Suspect]
     Active Substance: NILOTINIB
     Route: 065
  13. TASIGNA [Suspect]
     Active Substance: NILOTINIB
     Dosage: 300 MG, Q12H
     Route: 048
  14. TASIGNA [Suspect]
     Active Substance: NILOTINIB
     Dosage: 300 MG, Q12H (300 MG EVERY 12 HOURS EVERY OTHER DAY/ 2 OF 150 MG EVERY 12 HOURS EVERY OTHER DAY)
     Route: 048
  15. CARVEDILOL [Suspect]
     Active Substance: CARVEDILOL
     Indication: Arrhythmia
     Route: 048
  16. Tiroxin [Concomitant]
     Indication: Hyperthyroidism
     Dosage: 100 MG, QD
     Route: 048
  17. METOPROLOL [Concomitant]
     Active Substance: METOPROLOL
     Indication: Hypertension
     Dosage: 100 MG, Q12H (EVERY 12 HOURS) (1 WITH BREAKFAST AND 1 AT NIGHT)
     Route: 048
     Dates: start: 20150917
  18. Ciruelax [Concomitant]
     Indication: Constipation
     Route: 048
  19. LEVOTHYROXINE [Concomitant]
     Active Substance: LEVOTHYROXINE
     Indication: Hypothyroidism
     Route: 048
  20. LEVOTHYROXINE [Concomitant]
     Active Substance: LEVOTHYROXINE
     Route: 065
  21. ASPIRIN [Concomitant]
     Active Substance: ASPIRIN
     Indication: Product used for unknown indication
     Route: 048
  22. NIZATIDINE [Concomitant]
     Active Substance: NIZATIDINE
     Indication: Product used for unknown indication
     Route: 065
  23. MAGNESIUM [Concomitant]
     Active Substance: MAGNESIUM
     Indication: Product used for unknown indication
     Dosage: UNK, BID
     Route: 065
  24. VITAMINS NOS [Concomitant]
     Active Substance: VITAMINS
     Indication: Product used for unknown indication
     Route: 065
  25. PYRIDOXINE [Concomitant]
     Active Substance: PYRIDOXINE
     Indication: Product used for unknown indication
     Dosage: 2 DOSAGE FORM, QD
     Route: 065
  26. FOLIC ACID [Concomitant]
     Active Substance: FOLIC ACID
     Indication: Product used for unknown indication
     Dosage: 1 DOSAGE FORM, QD
     Route: 065
  27. VITAMIN C [Concomitant]
     Active Substance: ASCORBIC ACID
     Indication: Product used for unknown indication
     Dosage: 1 DOSAGE FORM, QD
     Route: 065
  28. VITAMIN E [Concomitant]
     Active Substance: .ALPHA.-TOCOPHEROL
     Indication: Product used for unknown indication
     Route: 065

REACTIONS (25)
  - Peripheral arterial occlusive disease [Recovering/Resolving]
  - Arrhythmia [Unknown]
  - Pain in extremity [Unknown]
  - Gait disturbance [Recovering/Resolving]
  - Poor peripheral circulation [Recovering/Resolving]
  - Arthralgia [Not Recovered/Not Resolved]
  - Venous occlusion [Unknown]
  - Dysphagia [Unknown]
  - Influenza [Recovered/Resolved]
  - Contusion [Recovered/Resolved]
  - Peripheral swelling [Unknown]
  - Serum ferritin increased [Unknown]
  - Neck pain [Unknown]
  - Investigation abnormal [Unknown]
  - Discomfort [Unknown]
  - Cough [Unknown]
  - Haemoglobin decreased [Unknown]
  - Product prescribing error [Unknown]
  - Incorrect dose administered [Unknown]
  - Off label use [Unknown]
  - Oropharyngeal discomfort [Recovered/Resolved]
  - Pain [Unknown]
  - Wound [Unknown]
  - Confusional state [Unknown]
  - Memory impairment [Unknown]

NARRATIVE: CASE EVENT DATE: 20151002
